FAERS Safety Report 14269830 (Version 1)
Quarter: 2017Q4

REPORT INFORMATION
  Report Type: Spontaneous
  Country: US (occurrence: US)
  Receive Date: 20171211
  Receipt Date: 20171211
  Transmission Date: 20180321
  Serious: Yes (Hospitalization, Other)
  Sender: FDA-Public Use
  Company Number: US-OTSUKA-2016_005773

PATIENT
  Sex: Male

DRUGS (1)
  1. ABILIFY [Suspect]
     Active Substance: ARIPIPRAZOLE
     Indication: MAJOR DEPRESSION
     Dosage: 15 MG, QD
     Route: 048

REACTIONS (6)
  - Thyroid hormones decreased [Unknown]
  - Blood glucose increased [Unknown]
  - Psychomotor hyperactivity [Not Recovered/Not Resolved]
  - Depression [Not Recovered/Not Resolved]
  - Lactic acidosis [Unknown]
  - Emotional disorder [Not Recovered/Not Resolved]

NARRATIVE: CASE EVENT DATE: 2014
